FAERS Safety Report 21566725 (Version 1)
Quarter: 2022Q4

REPORT INFORMATION
  Report Type: Spontaneous
  Country: CN (occurrence: CN)
  Receive Date: 20221108
  Receipt Date: 20221108
  Transmission Date: 20230112
  Serious: Yes (Hospitalization, Other)
  Sender: FDA-Public Use
  Company Number: None

PATIENT
  Age: 32 Year
  Sex: Male
  Weight: 52.4 kg

DRUGS (6)
  1. CYCLOPHOSPHAMIDE [Suspect]
     Active Substance: CYCLOPHOSPHAMIDE
     Indication: Acute lymphocytic leukaemia
     Dosage: 900 MG, QD, INTRA-PUMP INJECTION DILUTED WITH 500 ML OF 0.9% SODIUM CHLORIDE INJECTION
     Route: 050
     Dates: start: 20220902, end: 20220902
  2. SODIUM CHLORIDE [Suspect]
     Active Substance: SODIUM CHLORIDE
     Indication: Medication dilution
     Dosage: 500 ML USED TO DILUTE 900 MG OF CYCLOPHOSPHAMIDE INJECTION, INTRA PUMP INJECTION
     Route: 050
     Dates: start: 20221002
  3. SODIUM CHLORIDE [Suspect]
     Active Substance: SODIUM CHLORIDE
     Dosage: 250 ML USED TO DILUTE 50 MG OF DAUNORUBICIN HYDROCHLORIDE, INTRA-PUMP INJECTION
     Route: 050
     Dates: start: 20221002
  4. SODIUM CHLORIDE [Suspect]
     Active Substance: SODIUM CHLORIDE
     Dosage: 50 ML USED TO DILUTE 2 MG OF VINCRISTINE SULPHATE
     Route: 041
     Dates: start: 20221002
  5. DAUNORUBICIN HYDROCHLORIDE [Suspect]
     Active Substance: DAUNORUBICIN HYDROCHLORIDE
     Indication: Acute lymphocytic leukaemia
     Dosage: 50 MG, QD, INTRA PUMP INJECTION DILUTED WITH 250 ML OF 0.9% SODIUM CHLORIDE INJECTION
     Route: 050
     Dates: start: 20220902, end: 20220902
  6. VINCRISTINE SULFATE [Suspect]
     Active Substance: VINCRISTINE SULFATE
     Indication: Acute lymphocytic leukaemia
     Dosage: 2 MG, QD, DILUTED WITH 50 ML OF 0.9% SODIUM CHLORIDE INJECTION
     Route: 041
     Dates: start: 20220902, end: 20220902

REACTIONS (2)
  - Myelosuppression [Unknown]
  - Platelet count decreased [Unknown]

NARRATIVE: CASE EVENT DATE: 20221018
